FAERS Safety Report 24235020 (Version 1)
Quarter: 2024Q3

REPORT INFORMATION
  Report Type: Spontaneous
  Country: US (occurrence: US)
  Receive Date: 20240821
  Receipt Date: 20240821
  Transmission Date: 20241017
  Serious: No
  Sender: Solventum
  Company Number: US-3M-2024-US-004908

PATIENT

DRUGS (1)
  1. PERIDEX [Suspect]
     Active Substance: CHLORHEXIDINE GLUCONATE
     Indication: Product used for unknown indication
     Dates: start: 20240125

REACTIONS (1)
  - Gingival discolouration [Unknown]
